FAERS Safety Report 11774908 (Version 1)
Quarter: 2015Q4

REPORT INFORMATION
  Report Type: Other
  Country: GB (occurrence: GB)
  Receive Date: 20151124
  Receipt Date: 20151124
  Transmission Date: 20160304
  Serious: Yes (Other)
  Sender: FDA-Public Use
  Company Number: GB-VERTEX PHARMACEUTICALS-2015-005337

PATIENT
  Age: 58 Year
  Sex: Male
  Weight: 64 kg

DRUGS (16)
  1. VITAMIN A [Concomitant]
     Active Substance: VITAMIN A
  2. VITAMIN K [Concomitant]
     Active Substance: PHYTONADIONE
  3. ALENDRONIC ACID [Concomitant]
     Active Substance: ALENDRONIC ACID
  4. VITAMIN E [Concomitant]
     Active Substance: .ALPHA.-TOCOPHEROL
  5. COLOMYCIN [Concomitant]
     Active Substance: COLISTIN
  6. COTRIMOXAZOLE [Concomitant]
     Active Substance: SULFAMETHOXAZOLE\TRIMETHOPRIM
  7. CREON [Concomitant]
     Active Substance: PANCRELIPASE AMYLASE\PANCRELIPASE LIPASE\PANCRELIPASE PROTEASE
  8. KALYDECO [Suspect]
     Active Substance: IVACAFTOR
     Indication: CYSTIC FIBROSIS
     Dosage: 150 MG, BID
     Route: 048
     Dates: start: 20101215, end: 20150611
  9. DEOXYRIBONUCLEASE [Concomitant]
  10. LEVEMIR [Concomitant]
     Active Substance: INSULIN DETEMIR
  11. URSODEOXYCHOLIC ACID [Concomitant]
     Active Substance: URSODIOL
  12. VITAMIN D [Concomitant]
     Active Substance: CHOLECALCIFEROL
  13. ADCAL D3 [Concomitant]
     Active Substance: CALCIUM CARBONATE\CHOLECALCIFEROL
  14. HUMULIN NOS [Concomitant]
     Active Substance: INSULIN HUMAN
  15. SALBUTAMOL [Concomitant]
     Active Substance: ALBUTEROL
  16. TIOTROPIUM [Concomitant]
     Active Substance: TIOTROPIUM

REACTIONS (2)
  - Pneumonitis [Unknown]
  - Condition aggravated [Unknown]
